FAERS Safety Report 5854357-5 (Version None)
Quarter: 2008Q3

REPORT INFORMATION
  Report Type: 
  Country: None (occurrence: None)
  Receive Date: 20080822
  Receipt Date: 20080807
  Transmission Date: 20090109
  Serious: No
  Sender: FDA-Public Use
  Company Number: DE-WYE-G01972408

PATIENT
  Sex: Female

DRUGS (6)
  1. TREVILOR RETARD [Suspect]
     Indication: DEPRESSION
     Route: 048
     Dates: start: 20080312, end: 20080715
  2. TREVILOR RETARD [Suspect]
     Route: 048
     Dates: start: 20080716, end: 20080716
  3. QUILONORM RETARD [Concomitant]
     Indication: MOOD SWINGS
     Route: 065
     Dates: start: 20080610
  4. SEROQUEL [Concomitant]
     Indication: SLEEP DISORDER
     Route: 048
     Dates: start: 20080201
  5. SEROQUEL [Concomitant]
     Indication: DEPRESSION
  6. LAMOTRIGINE [Concomitant]
     Indication: MOOD SWINGS
     Route: 065
     Dates: start: 20080328

REACTIONS (12)
  - COORDINATION ABNORMAL [None]
  - DISTURBANCE IN ATTENTION [None]
  - FALL [None]
  - GAIT DISTURBANCE [None]
  - MICTURITION DISORDER [None]
  - MUSCLE SPASMS [None]
  - MYOCLONUS [None]
  - OVERDOSE [None]
  - SPEECH DISORDER [None]
  - TREMOR [None]
  - VERTIGO [None]
  - VISUAL IMPAIRMENT [None]
